FAERS Safety Report 9008983 (Version 1)
Quarter: 2013Q1

REPORT INFORMATION
  Report Type: Spontaneous
  Country: US (occurrence: US)
  Receive Date: 20130111
  Receipt Date: 20130111
  Transmission Date: 20140127
  Serious: Yes (Other)
  Sender: FDA-Public Use
  Company Number: US-BAYER-2013-001647

PATIENT
  Age: 38 Year
  Sex: Female
  Weight: 54 kg

DRUGS (2)
  1. ALKA-SELTZER PLUS NIGHT COLD MEDICINE [Suspect]
     Dosage: 4 DF, ONCE
     Route: 048
     Dates: start: 20130102
  2. HERBAL PREPARATION [Concomitant]

REACTIONS (10)
  - Haematemesis [None]
  - Heart rate irregular [Not Recovered/Not Resolved]
  - Asthenia [Not Recovered/Not Resolved]
  - Paraesthesia [Not Recovered/Not Resolved]
  - Vomiting [Recovered/Resolved]
  - Incorrect dose administered [None]
  - Dyspepsia [None]
  - Cold sweat [None]
  - Nasal obstruction [None]
  - Palpitations [None]
